FAERS Safety Report 9540958 (Version 2)
Quarter: 2014Q1

REPORT INFORMATION
  Report Type: Report from Study
  Country: JP (occurrence: JP)
  Receive Date: 20130921
  Receipt Date: 20140320
  Transmission Date: 20141002
  Serious: Yes (Death)
  Sender: FDA-Public Use
  Company Number: JP-ROCHE-1278698

PATIENT
  Age: 85 Year
  Sex: Female

DRUGS (10)
  1. METHOXY POLYETHYLENE GLYCOL-EPOETIN BETA [Suspect]
     Indication: NEPHROGENIC ANAEMIA
     Route: 058
     Dates: start: 20130312, end: 20130416
  2. DIART [Concomitant]
     Route: 048
     Dates: end: 20130516
  3. LASIX [Concomitant]
     Route: 048
     Dates: end: 20130516
  4. ALDACTONE A [Concomitant]
     Route: 048
     Dates: end: 20130516
  5. BAYASPIRIN [Concomitant]
     Route: 048
     Dates: end: 20130516
  6. ZYLORIC [Concomitant]
     Route: 048
     Dates: end: 20130516
  7. PARIET [Concomitant]
     Indication: PROPHYLAXIS
     Route: 048
     Dates: end: 20130516
  8. VOGLIBOSE [Concomitant]
     Route: 048
     Dates: end: 20130516
  9. PIMOBENDAN [Concomitant]
     Route: 048
     Dates: end: 20130516
  10. NITRODERM TTS [Concomitant]
     Route: 062
     Dates: end: 20130516

REACTIONS (2)
  - Cardiac failure [Fatal]
  - Pneumonia aspiration [Fatal]
